FAERS Safety Report 7483162-1 (Version None)
Quarter: 2011Q2

REPORT INFORMATION
  Report Type: 
  Country: None (occurrence: None)
  Receive Date: 20110516
  Receipt Date: 20100402
  Transmission Date: 20111010
  Serious: Yes (Other)
  Sender: FDA-Public Use
  Company Number: US-AMGEN-KDL398481

PATIENT
  Age: 54 Year
  Sex: Female
  Weight: 66 kg

DRUGS (13)
  1. PARICALCITOL [Concomitant]
     Dosage: 12 A?G, 3 TIMES/WK
  2. LANTUS [Concomitant]
     Dosage: 35 IU, QD
     Route: 058
  3. EPOGEN [Concomitant]
     Indication: DIALYSIS
     Dosage: 6600 IU, 3 TIMES/WK
  4. TOPROL-XL [Concomitant]
     Dosage: 50 MG, QD
     Route: 048
  5. ACETAMINOPHEN AND HYDROCODONE BITARTRATE [Concomitant]
     Dosage: UNK UNK, Q8H
     Route: 048
  6. REPAGLINIDE [Concomitant]
     Dosage: 2 MG, BID
     Route: 048
  7. SEVELAMER [Concomitant]
     Dosage: 800 MG, TID
     Route: 048
  8. SENSIPAR [Suspect]
     Indication: HYPERPARATHYROIDISM SECONDARY
     Dosage: 60 MG, QD
     Route: 048
     Dates: start: 20090929
  9. ALLBEE WITH C [Concomitant]
     Dosage: UNK UNK, QD
     Route: 048
  10. AUGMENTIN [Concomitant]
     Dosage: 500 MG, QD
     Route: 048
  11. DIGOXIN [Concomitant]
     Dosage: .125 MG, QD
     Route: 048
  12. VENOFER [Concomitant]
     Dosage: 100 MG, Q2WK
  13. FOLIC ACID [Concomitant]
     Dosage: 1 MG, QD
     Route: 048

REACTIONS (2)
  - NAUSEA [None]
  - VOMITING [None]
